FAERS Safety Report 24298592 (Version 1)
Quarter: 2024Q3

REPORT INFORMATION
  Report Type: Spontaneous
  Country: US (occurrence: None)
  Receive Date: 20240906
  Receipt Date: 20240906
  Transmission Date: 20241017
  Serious: Yes (Other)
  Sender: Public
  Company Number: None

PATIENT
  Age: 78 Year
  Sex: Female

DRUGS (14)
  1. XDEMVY [Suspect]
     Active Substance: LOTILANER
  2. MIEBO 1.3GM/ML OPTH SOL [Concomitant]
  3. RETAINE MGD [Concomitant]
     Active Substance: LIGHT MINERAL OIL\MINERAL OIL
  4. ACIPHEX [Concomitant]
     Active Substance: RABEPRAZOLE SODIUM
  5. DIAMOX SEQUELS [Concomitant]
     Active Substance: ACETAZOLAMIDE
  6. INDERAL [Concomitant]
     Active Substance: PROPRANOLOL HYDROCHLORIDE
  7. MIDAMOR [Concomitant]
     Active Substance: AMILORIDE HYDROCHLORIDE
  8. PROVENTIL HFA IN W/DOS [Concomitant]
     Dosage: OTHER QUANTITY : 200 PUFFS;?
  9. ROBAZIN [Concomitant]
  10. SINGULAIR [Concomitant]
     Active Substance: MONTELUKAST SODIUM
  11. CELEBREX [Concomitant]
     Active Substance: CELECOXIB
  12. DESPIRAMINE [Concomitant]
  13. ZETIA [Concomitant]
     Active Substance: EZETIMIBE
  14. EMGALITY [Concomitant]
     Indication: Demodex blepharitis
     Dosage: FREQUENCY : TWICE A DAY;?
     Route: 031
     Dates: start: 20240824, end: 20240825

REACTIONS (3)
  - Hypersensitivity [None]
  - Migraine [None]
  - Therapy cessation [None]

NARRATIVE: CASE EVENT DATE: 20240825
